FAERS Safety Report 16694362 (Version 1)
Quarter: 2019Q3

REPORT INFORMATION
  Report Type: Spontaneous
  Country: US (occurrence: US)
  Receive Date: 20190812
  Receipt Date: 20190812
  Transmission Date: 20191004
  Serious: No
  Sender: FDA-Public Use
  Company Number: US-PFIZER INC-2019336790

PATIENT
  Sex: Male

DRUGS (5)
  1. DILANTIN [Suspect]
     Active Substance: PHENYTOIN
     Dosage: UNK
  2. PHENYTOIN. [Suspect]
     Active Substance: PHENYTOIN
     Dosage: 250 MG, DAILY (100MG AND 150MG)
  3. PHENYTOIN. [Suspect]
     Active Substance: PHENYTOIN
     Dosage: 250 MG, DAILY (100MG AND 150MG)
  4. PHENYTOIN. [Suspect]
     Active Substance: PHENYTOIN
     Dosage: 150 MG, 2X/DAY
  5. PHENYTOIN. [Suspect]
     Active Substance: PHENYTOIN
     Dosage: 150 MG, 2X/DAY

REACTIONS (2)
  - Aura [Unknown]
  - Dysphagia [Unknown]
